FAERS Safety Report 6501669-8 (Version None)
Quarter: 2009Q4

REPORT INFORMATION
  Report Type: 
  Country: None (occurrence: None)
  Receive Date: 20091216
  Receipt Date: 20091209
  Transmission Date: 20100525
  Serious: Yes (Hospitalization)
  Sender: FDA-Public Use
  Company Number: GB-TEVA-177821ISR

PATIENT
  Age: 8 Month
  Sex: Male

DRUGS (2)
  1. PROPRANOLOL [Suspect]
  2. TIMOLOL MALEATE [Interacting]

REACTIONS (2)
  - ACCIDENTAL EXPOSURE [None]
  - DRUG INTERACTION [None]
